FAERS Safety Report 20544337 (Version 1)
Quarter: 2022Q1

REPORT INFORMATION
  Report Type: Report from Study
  Country: US (occurrence: US)
  Receive Date: 20220303
  Receipt Date: 20220303
  Transmission Date: 20220423
  Serious: Yes (Other)
  Sender: FDA-Public Use
  Company Number: US-TEVA-809477USA

PATIENT
  Age: 16 Year
  Sex: Male

DRUGS (1)
  1. CLARAVIS [Suspect]
     Active Substance: ISOTRETINOIN
     Route: 065
     Dates: start: 201708, end: 201708

REACTIONS (2)
  - Rectal haemorrhage [Recovered/Resolved with Sequelae]
  - Mood altered [Unknown]

NARRATIVE: CASE EVENT DATE: 20170801
